FAERS Safety Report 4838326-X (Version None)
Quarter: 2005Q4

REPORT INFORMATION
  Report Type: 
  Country: None (occurrence: None)
  Receive Date: 20051128
  Receipt Date: 20051115
  Transmission Date: 20060501
  Serious: Yes (Death, Other)
  Sender: FDA-Public Use
  Company Number: PHBS2005SE16737

PATIENT
  Sex: Female

DRUGS (11)
  1. FUROSEMIDE [Concomitant]
     Route: 065
  2. ACETAMINOPHEN [Concomitant]
     Route: 065
  3. DOLCONTIN [Concomitant]
     Route: 065
  4. STILNOCT [Concomitant]
     Route: 065
  5. TRYPTIZOL [Concomitant]
     Route: 065
  6. FOLACIN [Concomitant]
     Route: 065
  7. BEHEPAN [Concomitant]
     Route: 065
  8. NEURONTIN [Concomitant]
     Route: 065
  9. LANSOPRAZOLE [Concomitant]
     Route: 065
  10. ALKERAN [Concomitant]
     Route: 065
  11. ZOMETA [Suspect]
     Indication: MULTIPLE MYELOMA
     Dosage: 4 MG
     Dates: start: 20010101, end: 20050117

REACTIONS (4)
  - DENTAL OPERATION [None]
  - MALIGNANT NEOPLASM PROGRESSION [None]
  - OSTEONECROSIS [None]
  - TOOTH EXTRACTION [None]
